FAERS Safety Report 4730526-2 (Version None)
Quarter: 2005Q3

REPORT INFORMATION
  Report Type: 
  Country: None (occurrence: None)
  Receive Date: 20050801
  Receipt Date: 20050719
  Transmission Date: 20060218
  Serious: Yes (Hospitalization)
  Sender: FDA-Public Use
  Company Number: JP-ABBOTT-05P-087-0306163-00

PATIENT
  Sex: Female

DRUGS (6)
  1. TRICOR 100 CAPSULES [Suspect]
     Indication: HYPERLIPIDAEMIA
     Route: 048
     Dates: start: 20050414, end: 20050602
  2. CALCITRIOL [Concomitant]
     Indication: DRUG USE FOR UNKNOWN INDICATION
  3. OMEPRAZOLE [Concomitant]
     Indication: DRUG USE FOR UNKNOWN INDICATION
  4. MYSLEE [Concomitant]
     Indication: DRUG USE FOR UNKNOWN INDICATION
  5. ITOPRIDE HYDROCHLORIDE [Concomitant]
     Indication: DRUG USE FOR UNKNOWN INDICATION
  6. TEPRENONE [Concomitant]
     Indication: DRUG USE FOR UNKNOWN INDICATION

REACTIONS (2)
  - ECZEMA [None]
  - LIVER DISORDER [None]
